FAERS Safety Report 5838319-X (Version None)
Quarter: 2008Q3

REPORT INFORMATION
  Report Type: 
  Country: None (occurrence: None)
  Receive Date: 20080808
  Receipt Date: 20080804
  Transmission Date: 20090109
  Serious: Yes (Hospitalization)
  Sender: FDA-Public Use
  Company Number: US-BRISTOL-MYERS SQUIBB COMPANY-14288385

PATIENT
  Age: 62 Year
  Sex: Female
  Weight: 45 kg

DRUGS (2)
  1. CISPLATIN [Suspect]
     Indication: HEAD AND NECK CANCER
     Dosage: STARTED ON 26DEC07
     Dates: start: 20080116, end: 20080116
  2. RADIATION THERAPY [Suspect]
     Indication: HEAD AND NECK CANCER
     Dosage: 1 DOSAGE FORM=70GY, FRACTION-35, ELASPSED DAYS-46.
     Dates: start: 20080205, end: 20080205

REACTIONS (1)
  - WOUND COMPLICATION [None]
